FAERS Safety Report 5380562-0 (Version None)
Quarter: 2007Q3

REPORT INFORMATION
  Report Type: 
  Country: None (occurrence: None)
  Receive Date: 20070703
  Receipt Date: 20070625
  Transmission Date: 20080115
  Serious: Yes (Life-Threatening)
  Sender: FDA-Public Use
  Company Number: 2007-160424-NL

PATIENT
  Age: 80 Year
  Sex: Female

DRUGS (5)
  1. VECURONIUM BROMIDE (SEE ATTACHED PAGES FOR ADDITIONAL SUSPECT DRUGS) [Suspect]
     Indication: INDUCTION OF ANAESTHESIA
     Dosage: 8 MG ONCE INTRAVENOUS (NOS)
     Route: 042
  2. PROPOFOL [Suspect]
     Indication: INDUCTION OF ANAESTHESIA
     Dosage: 80 MG ONCE INTRAVENOUS (NOS0
     Route: 042
  3. VALSARTAN [Concomitant]
  4. AMLODIPINE [Concomitant]
  5. SEVOFLURANE [Concomitant]

REACTIONS (2)
  - ATRIOVENTRICULAR BLOCK SECOND DEGREE [None]
  - CARDIAC ARREST [None]
